FAERS Safety Report 7751383-6 (Version None)
Quarter: 2011Q3

REPORT INFORMATION
  Report Type: 
  Country: None (occurrence: None)
  Receive Date: 20110914
  Receipt Date: 20110523
  Transmission Date: 20111222
  Serious: No
  Sender: FDA-Public Use
  Company Number: US-BAYER-2011-044472

PATIENT
  Age: 57 Year
  Sex: Female
  Weight: 78.912 kg

DRUGS (5)
  1. CONTRAST MEDIA [Concomitant]
     Indication: COMPUTERISED TOMOGRAM
     Dosage: UNK
     Route: 048
     Dates: start: 20110523, end: 20110523
  2. ULTRAVIST 150 [Suspect]
     Dosage: 18 ML, ONCE
     Route: 042
     Dates: start: 20110523, end: 20110523
  3. LEXAPRO [Concomitant]
  4. XANAX [Concomitant]
  5. METFORMIN HCL [Concomitant]

REACTIONS (1)
  - URTICARIA [None]
